FAERS Safety Report 6418736-X (Version None)
Quarter: 2009Q4

REPORT INFORMATION
  Report Type: 
  Country: None (occurrence: None)
  Receive Date: 20091026
  Receipt Date: 20091014
  Transmission Date: 20100525
  Serious: Yes (Death, Hospitalization)
  Sender: FDA-Public Use
  Company Number: 2009AC000233

PATIENT
  Age: 59 Year
  Sex: Male
  Weight: 86.1834 kg

DRUGS (14)
  1. DIGOXIN [Suspect]
     Dosage: 0.125 MG; QD; PO
     Route: 048
     Dates: start: 20050101
  2. MORPHINE [Concomitant]
  3. PHENERGAN HCL [Concomitant]
  4. LASIX [Concomitant]
  5. ASPIRN [Concomitant]
  6. INSULIN [Concomitant]
  7. NITROPAST [Concomitant]
  8. VECUPONIUM [Concomitant]
  9. MEDROL [Concomitant]
  10. LIDOCAINE [Concomitant]
  11. VERSED [Concomitant]
  12. VERCURON [Concomitant]
  13. ATIVAN [Concomitant]
  14. EPINEPHRINE [Concomitant]

REACTIONS (15)
  - ACUTE MYOCARDIAL INFARCTION [None]
  - CARDIAC ARREST [None]
  - ECONOMIC PROBLEM [None]
  - ELECTROCARDIOGRAM CHANGE [None]
  - HYPERKALAEMIA [None]
  - HYPOTENSION [None]
  - INTRACARDIAC THROMBUS [None]
  - LIVER FUNCTION TEST ABNORMAL [None]
  - MULTIPLE INJURIES [None]
  - OEDEMA PERIPHERAL [None]
  - PAIN IN EXTREMITY [None]
  - PERIPHERAL ISCHAEMIA [None]
  - PERIPHERAL VASCULAR DISORDER [None]
  - RENAL FAILURE ACUTE [None]
  - VENTRICULAR TACHYCARDIA [None]
